FAERS Safety Report 21439012 (Version 1)
Quarter: 2022Q4

REPORT INFORMATION
  Report Type: Spontaneous
  Country: JP (occurrence: JP)
  Receive Date: 20221011
  Receipt Date: 20221011
  Transmission Date: 20230113
  Serious: Yes (Other)
  Sender: FDA-Public Use
  Company Number: JP-OTSUKA-2019_004925

PATIENT
  Age: 3 Decade
  Sex: Male
  Weight: 64.2 kg

DRUGS (12)
  1. ICLUSIG [Suspect]
     Active Substance: PONATINIB
     Indication: Chronic myeloid leukaemia transformation
     Dosage: 45 MILLIGRAM
     Route: 048
  2. DASATINIB [Suspect]
     Active Substance: DASATINIB
     Indication: Chronic myeloid leukaemia transformation
     Dosage: 140 MILLIGRAM
     Route: 048
  3. IDARUBICIN HYDROCHLORIDE [Suspect]
     Active Substance: IDARUBICIN HYDROCHLORIDE
     Indication: Chronic myeloid leukaemia transformation
     Dosage: 38 MILLIGRAM/SQ. METER
     Route: 065
  4. CYTARABINE [Suspect]
     Active Substance: CYTARABINE
     Indication: Chronic myeloid leukaemia transformation
     Dosage: UNK
     Route: 065
  5. CARVEDILOL [Suspect]
     Active Substance: CARVEDILOL
     Indication: Chronic myeloid leukaemia transformation
     Dosage: 7.5 MILLIGRAM
     Route: 065
  6. CARVEDILOL [Suspect]
     Active Substance: CARVEDILOL
     Dosage: 2.5 MILLIGRAM
     Route: 065
  7. CARVEDILOL [Suspect]
     Active Substance: CARVEDILOL
     Dosage: 5 MILLIGRAM
     Route: 065
  8. ENALAPRIL [Suspect]
     Active Substance: ENALAPRIL
     Indication: Chronic myeloid leukaemia transformation
     Dosage: 2.5 MILLIGRAM
     Route: 065
  9. HYDREA [Suspect]
     Active Substance: HYDROXYUREA
     Indication: Chronic myeloid leukaemia transformation
     Dosage: UNK
     Route: 065
  10. CYCLOSPORINE [Suspect]
     Active Substance: CYCLOSPORINE
     Indication: Chronic myeloid leukaemia transformation
     Dosage: 200 MILLIGRAM
     Route: 065
  11. CYCLOSPORINE [Suspect]
     Active Substance: CYCLOSPORINE
     Dosage: 300 MILLIGRAM
     Route: 065
  12. ADRIACIN [Suspect]
     Active Substance: DOXORUBICIN HYDROCHLORIDE
     Indication: Chronic myeloid leukaemia transformation
     Dosage: UNK
     Route: 065

REACTIONS (6)
  - Cardiac dysfunction [Recovered/Resolved]
  - Ventricular hypokinesia [Unknown]
  - Electrocardiogram ST segment depression [Unknown]
  - Blood culture positive [Unknown]
  - Pyrexia [Unknown]
  - Dyspnoea [Unknown]
